FAERS Safety Report 17179263 (Version 1)
Quarter: 2019Q4

REPORT INFORMATION
  Report Type: Report from Study
  Country: CO (occurrence: CO)
  Receive Date: 20191219
  Receipt Date: 20191219
  Transmission Date: 20200122
  Serious: Yes (Hospitalization)
  Sender: FDA-Public Use
  Company Number: CO-VIFOR (INTERNATIONAL) INC.-VIT-2019-16896

PATIENT
  Sex: Male

DRUGS (1)
  1. MIRCERA [Suspect]
     Active Substance: METHOXY POLYETHYLENE GLYCOL-EPOETIN BETA
     Indication: ANAEMIA
     Route: 065

REACTIONS (8)
  - Tremor [Unknown]
  - Limb injury [Unknown]
  - Increased appetite [Not Recovered/Not Resolved]
  - Chills [Unknown]
  - Pneumonia [Unknown]
  - Haemoglobin increased [Unknown]
  - Pyrexia [Unknown]
  - Nasopharyngitis [Unknown]
